FAERS Safety Report 23790109 (Version 1)
Quarter: 2024Q2

REPORT INFORMATION
  Report Type: Spontaneous
  Country: ES (occurrence: ES)
  Receive Date: 20240426
  Receipt Date: 20240426
  Transmission Date: 20240716
  Serious: Yes (Life-Threatening)
  Sender: FDA-Public Use
  Company Number: None

PATIENT
  Age: 47 Year
  Sex: Female

DRUGS (9)
  1. PREGABALIN [Suspect]
     Active Substance: PREGABALIN
     Indication: Pain
     Dosage: PREGABALIN (3897A)
     Route: 048
     Dates: start: 2023, end: 20240226
  2. TRAZODONE [Suspect]
     Active Substance: TRAZODONE HYDROCHLORIDE
     Indication: Pain
     Dosage: TRAZODONE HYDROCHLORIDE (3160CH)
     Route: 048
     Dates: start: 2023, end: 20240226
  3. TAPENTADOL [Suspect]
     Active Substance: TAPENTADOL
     Indication: Pain
     Dosage: TAPENTADOL KRKA  EFG, 60 TABLETS
     Route: 048
     Dates: start: 20240205, end: 20240226
  4. CARBAMAZEPINE [Suspect]
     Active Substance: CARBAMAZEPINE
     Indication: Pain
     Dosage: CARBAMAZEPINE (561A)
     Route: 048
     Dates: start: 2023, end: 20240226
  5. AMITRIPTYLINE [Suspect]
     Active Substance: AMITRIPTYLINE
     Indication: Pain
     Dosage: AMITRIPTYLINE (395A)
     Route: 048
     Dates: start: 2023, end: 20240226
  6. DIAZEPAM [Suspect]
     Active Substance: DIAZEPAM
     Indication: Pain
     Dosage: DIAZEPAM (730A)
     Route: 048
     Dates: start: 2023, end: 20240226
  7. TRAMADOL [Suspect]
     Active Substance: TRAMADOL\TRAMADOL HYDROCHLORIDE
     Indication: Pain
     Dosage: TRAMADOL ALMUS EFG, 20 CAPSULES
     Route: 048
     Dates: start: 20240213, end: 20240226
  8. LIDOCAINE [Suspect]
     Active Substance: LIDOCAINE
     Indication: Pain
     Dosage: LIDOCAINE KABI INJECTABLE SOLUTION EFG, 100 AMPOULES X 10 ML; FREQUENCY: 2 TOTAL
     Route: 042
     Dates: start: 20240216, end: 20240223
  9. METHOCARBAMOL [Suspect]
     Active Substance: METHOCARBAMOL
     Indication: Pain
     Route: 048
     Dates: start: 2023, end: 20240226

REACTIONS (2)
  - Respiratory depression [Recovered/Resolved]
  - Confusional state [Recovered/Resolved]

NARRATIVE: CASE EVENT DATE: 20240224
